FAERS Safety Report 9490043 (Version 4)
Quarter: 2013Q4

REPORT INFORMATION
  Report Type: Report from Study
  Country: US (occurrence: US)
  Receive Date: 20130829
  Receipt Date: 20131002
  Transmission Date: 20140711
  Serious: Yes (Other)
  Sender: FDA-Public Use
  Company Number: US-ROCHE-1223167

PATIENT
  Sex: Male

DRUGS (5)
  1. PEGASYS [Suspect]
     Indication: CHRONIC HEPATITIS C
     Route: 058
     Dates: start: 20130503
  2. TELAPREVIR [Suspect]
     Indication: CHRONIC HEPATITIS C
     Route: 065
     Dates: start: 20130503
  3. RIBAVIRIN [Suspect]
     Indication: CHRONIC HEPATITIS C
     Dosage: 2 DIVIDED DOSE
     Route: 048
     Dates: start: 20130503
  4. HYDROCORTISONE CREAM [Concomitant]
  5. BENADRYL [Concomitant]
     Route: 065

REACTIONS (16)
  - Cardiac disorder [Unknown]
  - Extrasystoles [Unknown]
  - Rash erythematous [Unknown]
  - Rash macular [Recovered/Resolved]
  - Rash erythematous [Unknown]
  - Rash pruritic [Unknown]
  - Pruritus [Unknown]
  - Rash [Unknown]
  - Testicular pain [Unknown]
  - Haemorrhoids [Unknown]
  - Haematochezia [Unknown]
  - Rash pruritic [Unknown]
  - Infection [Recovered/Resolved]
  - Dyspnoea [Unknown]
  - Vomiting [Unknown]
  - Blood count abnormal [Unknown]
